FAERS Safety Report 8442407 (Version 3)
Quarter: 2013Q1

REPORT INFORMATION
  Report Type: Spontaneous
  Country: US (occurrence: US)
  Receive Date: 20120306
  Receipt Date: 20130319
  Transmission Date: 20140127
  Serious: Yes (Hospitalization)
  Sender: FDA-Public Use
  Company Number: US-BAYER-2012-019511

PATIENT
  Age: 43 Year
  Sex: Female
  Weight: 68.03 kg

DRUGS (9)
  1. YAZ [Suspect]
     Indication: CONTRACEPTION
     Dosage: UNK
     Dates: start: 200603, end: 200912
  2. MULTIVITAMIN [Concomitant]
     Dosage: UNK UNK, ONCE DAILY
     Dates: start: 1995
  3. CALCIUM [Concomitant]
     Dosage: UNK UNK, ONCE DAILY
     Dates: start: 2006
  4. FISH OIL [Concomitant]
     Dosage: UNK UNK, ONCE DAILY
     Dates: start: 1999
  5. MOTRIN [Concomitant]
  6. ZOFRAN [Concomitant]
     Indication: PROPHYLAXIS OF NAUSEA AND VOMITING
  7. MORPHINE [Concomitant]
     Indication: PAIN
  8. XANAX [Concomitant]
     Indication: ANXIETY
  9. PERCOCET [OXYCODONE HYDROCHLORIDE,OXYCODONE TEREPHTHALATE,PARACETA [Concomitant]

REACTIONS (9)
  - Pulmonary embolism [None]
  - Deep vein thrombosis [None]
  - Pain [None]
  - Anxiety [None]
  - Anhedonia [None]
  - Fear [None]
  - Psychological trauma [None]
  - Chest pain [None]
  - Dyspnoea [None]
